FAERS Safety Report 25190573 (Version 2)
Quarter: 2025Q2

REPORT INFORMATION
  Report Type: Spontaneous
  Country: US (occurrence: US)
  Receive Date: 20250411
  Receipt Date: 20250520
  Transmission Date: 20250716
  Serious: No
  Sender: CALLIDITAS THERAPEUTICS AB
  Company Number: US-Calliditas-2025CAL00926

PATIENT
  Age: 72 Year
  Sex: Male

DRUGS (26)
  1. TARPEYO [Suspect]
     Active Substance: BUDESONIDE
     Indication: IgA nephropathy
     Route: 048
     Dates: start: 20250310
  2. AMBIEN [Concomitant]
     Active Substance: ZOLPIDEM TARTRATE
  3. BYSTOLIC [Concomitant]
     Active Substance: NEBIVOLOL HYDROCHLORIDE
  4. CALTRATE WITH VITAMIN D [Concomitant]
     Active Substance: CALCIUM CARBONATE\CHOLECALCIFEROL
  5. CELLCEPT [Concomitant]
     Active Substance: MYCOPHENOLATE MOFETIL
  6. CHOLECALCIFEROL [Concomitant]
     Active Substance: CHOLECALCIFEROL
  7. COLCHICINE [Concomitant]
     Active Substance: COLCHICINE
  8. CYANOCOBALAMIN [Concomitant]
     Active Substance: CYANOCOBALAMIN
  9. EDARBI [Concomitant]
     Active Substance: AZILSARTAN KAMEDOXOMIL
  10. ERGOCALCIFEROL [Concomitant]
     Active Substance: ERGOCALCIFEROL
  11. FERROUS SULFATE [Concomitant]
     Active Substance: FERROUS SULFATE
  12. FILSPARI [Concomitant]
     Active Substance: SPARSENTAN
  13. FOLIC ACID [Concomitant]
     Active Substance: FOLIC ACID
  14. IMODIUM [LOPERAMIDE] [Concomitant]
  15. KETOCONAZOLE [Concomitant]
     Active Substance: KETOCONAZOLE
  16. LOKELMA [SODIUM ZIRCONIUM CYCLOSILICATE] [Concomitant]
  17. NEXIUM [Concomitant]
     Active Substance: ESOMEPRAZOLE MAGNESIUM
  18. NORVASC [Concomitant]
     Active Substance: AMLODIPINE BESYLATE
  19. OLMESARTAN [Concomitant]
     Active Substance: OLMESARTAN
  20. OMEGA-3 FATTY ACIDS [Concomitant]
     Active Substance: OMEGA-3 FATTY ACIDS
  21. PREDNISONE [Concomitant]
     Active Substance: PREDNISONE
  22. PROCRIT [Concomitant]
     Active Substance: ERYTHROPOIETIN
  23. RANITIDINE [Concomitant]
     Active Substance: RANITIDINE
  24. SODIUM BICARBONATE [Concomitant]
     Active Substance: SODIUM BICARBONATE
  25. VASCEPA [Concomitant]
     Active Substance: ICOSAPENT ETHYL
  26. VELTASSA [Concomitant]
     Active Substance: PATIROMER

REACTIONS (2)
  - Peripheral swelling [Unknown]
  - Swelling face [Unknown]
